FAERS Safety Report 7030523-0 (Version None)
Quarter: 2010Q4

REPORT INFORMATION
  Report Type: 
  Country: None (occurrence: None)
  Receive Date: 20101006
  Receipt Date: 20100928
  Transmission Date: 20110411
  Serious: Yes (Hospitalization)
  Sender: FDA-Public Use
  Company Number: JP-ROCHE-656829

PATIENT
  Sex: Female
  Weight: 53 kg

DRUGS (12)
  1. ACTEMRA [Suspect]
     Indication: RHEUMATOID ARTHRITIS
     Route: 041
     Dates: start: 20050824, end: 20080701
  2. ACTEMRA [Suspect]
     Route: 041
     Dates: start: 20080731, end: 20080731
  3. ACTEMRA [Suspect]
     Route: 041
     Dates: start: 20080904, end: 20080904
  4. ACTEMRA [Suspect]
     Route: 041
     Dates: start: 20081009, end: 20081009
  5. ACTEMRA [Suspect]
     Route: 041
     Dates: start: 20081113, end: 20081113
  6. ACTEMRA [Suspect]
     Route: 041
     Dates: start: 20081218, end: 20081218
  7. ACTEMRA [Suspect]
     Route: 041
     Dates: start: 20090122, end: 20090122
  8. ACTEMRA [Suspect]
     Route: 041
     Dates: start: 20090220, end: 20090806
  9. PREDONINE [Concomitant]
     Route: 048
  10. GASTER D [Concomitant]
     Route: 048
  11. MUCOSTA [Concomitant]
     Dosage: FORM: ORAL FORMULATION (NOT OTHERWISE SPECIFIED)
     Route: 048
  12. MOBIC [Concomitant]
     Route: 048

REACTIONS (1)
  - PLEURISY [None]
